FAERS Safety Report 23079478 (Version 1)
Quarter: 2023Q4

REPORT INFORMATION
  Report Type: Spontaneous
  Country: US (occurrence: None)
  Receive Date: 20231017
  Receipt Date: 20231017
  Transmission Date: 20240109
  Serious: Yes (Other)
  Sender: FDA-Public Use
  Company Number: None

PATIENT
  Age: 86 Year
  Sex: Female

DRUGS (1)
  1. FUROSEMIDE [Suspect]
     Active Substance: FUROSEMIDE
     Dosage: FREQUENCY : DAILY;?

REACTIONS (5)
  - Chest discomfort [None]
  - Dyspnoea [None]
  - Palpitations [None]
  - Abdominal distension [None]
  - Joint swelling [None]
